FAERS Safety Report 10713413 (Version 1)
Quarter: 2015Q1

REPORT INFORMATION
  Report Type: Spontaneous
  Country: US (occurrence: US)
  Receive Date: 20150115
  Receipt Date: 20150115
  Transmission Date: 20150721
  Serious: Yes (Other)
  Sender: FDA-Public Use
  Company Number: US-PFIZER INC-2015003000

PATIENT
  Sex: Female

DRUGS (2)
  1. ROBITUSSIN NIGHT TIME COUGH AND COLD [Suspect]
     Active Substance: DIPHENHYDRAMINE HYDROCHLORIDE\PHENYLEPHRINE HYDROCHLORIDE
     Dosage: UNK
  2. ROBITUSSIN COUGH AND CHEST CONGESTION DM [Suspect]
     Active Substance: DEXTROMETHORPHAN HYDROBROMIDE\GUAIFENESIN
     Dosage: UNK

REACTIONS (4)
  - Dyspnoea [Unknown]
  - Dry mouth [Unknown]
  - Tongue movement disturbance [Unknown]
  - Night sweats [Unknown]
